FAERS Safety Report 9239414 (Version 1)
Quarter: 2013Q2

REPORT INFORMATION
  Report Type: Spontaneous
  Country: US (occurrence: US)
  Receive Date: 20130418
  Receipt Date: 20130418
  Transmission Date: 20140414
  Serious: Yes (Hospitalization, Other)
  Sender: FDA-Public Use
  Company Number: US-SANOFI-AVENTIS-2012SA042963

PATIENT
  Age: 67 Year
  Sex: Male
  Weight: 101.2 kg

DRUGS (11)
  1. LOVENOX [Suspect]
     Indication: DEEP VEIN THROMBOSIS
     Dosage: 1 MG/KG/DAY
     Route: 065
     Dates: start: 20111117, end: 20111209
  2. LOVENOX [Suspect]
     Indication: DEEP VEIN THROMBOSIS
     Dosage: 1 MG/KG
     Route: 065
     Dates: start: 20120106, end: 20120131
  3. COUMADIN [Suspect]
     Indication: DEEP VEIN THROMBOSIS
     Dosage: 7.5/5.0 MG
     Route: 048
     Dates: start: 20111201, end: 20111212
  4. COUMADIN [Suspect]
     Indication: DEEP VEIN THROMBOSIS
     Route: 048
     Dates: start: 20111212, end: 20111228
  5. SUNITINIB [Suspect]
     Indication: RENAL CELL CARCINOMA
     Route: 048
     Dates: start: 20110915, end: 20111013
  6. SUNITINIB [Suspect]
     Indication: RENAL CELL CARCINOMA
     Route: 048
     Dates: start: 20111028, end: 20111227
  7. SUNITINIB [Suspect]
     Indication: RENAL CELL CARCINOMA
     Route: 048
     Dates: start: 20120126, end: 20120131
  8. VITAMIN D [Concomitant]
  9. ZYRTEC [Concomitant]
     Indication: HYPERSENSITIVITY
  10. LISINOPRIL [Concomitant]
     Route: 048
  11. HYDRALAZINE [Concomitant]
     Route: 048

REACTIONS (1)
  - Subdural haematoma [Recovered/Resolved with Sequelae]
